FAERS Safety Report 5378458-3 (Version None)
Quarter: 2007Q3

REPORT INFORMATION
  Report Type: 
  Country: None (occurrence: None)
  Receive Date: 20070702
  Receipt Date: 20070615
  Transmission Date: 20080115
  Serious: Yes (Other)
  Sender: FDA-Public Use
  Company Number: S07-FRA-02700-01

PATIENT
  Age: 55 Year
  Sex: Male

DRUGS (6)
  1. ESCITALOPRAM [Suspect]
     Indication: DELIRIUM
     Dosage: 10 MG BID PO
     Route: 048
  2. ESCITALOPRAM [Suspect]
     Indication: MAJOR DEPRESSION
     Dosage: 10 MG BID PO
     Route: 048
  3. LOXAPINE SUCCINATE [Suspect]
     Indication: DELIRIUM
  4. LOXAPINE SUCCINATE [Suspect]
     Indication: MAJOR DEPRESSION
  5. PARKINANE                 (TRIHEXYPHENIDYL HYDROCHLORIDE) [Suspect]
     Indication: DELIRIUM
  6. PARKINANE                 (TRIHEXYPHENIDYL HYDROCHLORIDE) [Suspect]
     Indication: MAJOR DEPRESSION

REACTIONS (2)
  - ACUTE GENERALISED EXANTHEMATOUS PUSTULOSIS [None]
  - TOXIC SKIN ERUPTION [None]
